FAERS Safety Report 7360222-7 (Version None)
Quarter: 2011Q1

REPORT INFORMATION
  Report Type: 
  Country: None (occurrence: None)
  Receive Date: 20110307
  Receipt Date: 20110221
  Transmission Date: 20110831
  Serious: Yes (Other)
  Sender: FDA-Public Use
  Company Number: 2011AP000335

PATIENT
  Age: 34 Year
  Sex: Male

DRUGS (8)
  1. CYCLOSPORINE [Suspect]
     Dosage: 170MG;BID
  2. AZITHROMYCIN [Suspect]
     Dosage: 250 MG;QD
  3. COLCHICINE [Suspect]
     Dosage: 1 MG;TID, 1 MG; BID, 1 MG; QD
     Dates: start: 20091023, end: 20091028
  4. COLCHICINE [Suspect]
     Dosage: 1 MG;TID, 1 MG; BID, 1 MG; QD
     Dates: start: 20091020, end: 20091020
  5. COLCHICINE [Suspect]
     Dosage: 1 MG;TID, 1 MG; BID, 1 MG; QD
     Dates: start: 20091021, end: 20091022
  6. PRAVASTATIN SODIUM [Suspect]
     Dosage: 20 MG;QD
  7. HYDROCORTONE [Concomitant]
  8. EVEROLIMUS (EVEROLIMUS) [Concomitant]

REACTIONS (13)
  - HAEMOPTYSIS [None]
  - DIARRHOEA [None]
  - DYSPEPSIA [None]
  - BLOOD PRESSURE SYSTOLIC INCREASED [None]
  - HEART RATE INCREASED [None]
  - INFERIOR VENA CAVA DILATATION [None]
  - DRUG INTERACTION [None]
  - EJECTION FRACTION DECREASED [None]
  - RHABDOMYOLYSIS [None]
  - LEUKOCYTOSIS [None]
  - RENAL FAILURE [None]
  - CYTOLYTIC HEPATITIS [None]
  - GENERAL PHYSICAL CONDITION ABNORMAL [None]
